FAERS Safety Report 23105646 (Version 1)
Quarter: 2023Q4

REPORT INFORMATION
  Report Type: Spontaneous
  Country: US (occurrence: None)
  Receive Date: 20231023
  Receipt Date: 20231023
  Transmission Date: 20240109
  Serious: Yes (Hospitalization)
  Sender: FDA-Public Use
  Company Number: None

PATIENT
  Sex: Female

DRUGS (9)
  1. TOBI PODHALER [Suspect]
     Active Substance: TOBRAMYCIN
     Indication: Cystic fibrosis
     Dosage: FREQUENCY : TWICE A DAY;?
     Route: 055
     Dates: start: 20171122
  2. AZITHROMYCIN [Concomitant]
     Active Substance: AZITHROMYCIN
  3. AZITHROMYCIN [Concomitant]
     Active Substance: AZITHROMYCIN
  4. CLARITIN [Concomitant]
     Active Substance: LORATADINE
  5. COMBIVENT AER RESPIMAT [Concomitant]
  6. FERROUS SULFATE [Concomitant]
     Active Substance: FERROUS SULFATE
  7. FLUTICASONE SPR [Concomitant]
  8. PUKMOZYME SOL [Concomitant]
  9. SODIUM CHLOR SOL 0.9% IRR [Concomitant]

REACTIONS (1)
  - Pneumonia [None]
